FAERS Safety Report 7852861 (Version 4)
Quarter: 2014Q1

REPORT INFORMATION
  Report Type: Spontaneous
  Country: US (occurrence: US)
  Receive Date: 20110311
  Receipt Date: 20140226
  Transmission Date: 20141002
  Serious: Yes (Hospitalization, Other)
  Sender: FDA-Public Use
  Company Number: US-BAYER-2011-020940

PATIENT
  Age: 17 Year
  Sex: Female
  Weight: 81.63 kg

DRUGS (10)
  1. YASMIN [Suspect]
     Indication: CONTRACEPTION
     Dosage: UNK
  2. YASMIN [Suspect]
     Indication: ACNE
  3. YASMIN [Suspect]
     Indication: ENDOMETRIOSIS
  4. TRI-SPRINTEC [Concomitant]
     Indication: CONTRACEPTION
     Dosage: UNK
  5. ORTHO TRICYCLEN [Concomitant]
     Indication: CONTRACEPTION
  6. AVIANE [Concomitant]
     Indication: CONTRACEPTION
     Dosage: UNK
  7. LEVOTHYROXINE [Concomitant]
     Dosage: 25 MCG/24HR, UNK
     Route: 048
  8. PONSTEL [Concomitant]
  9. LEVSIN [Concomitant]
     Indication: NAUSEA
     Dosage: 0.125 MG, UNK
     Route: 060
  10. LEVSIN [Concomitant]
     Indication: VOMITING

REACTIONS (3)
  - Abdominal pain [Unknown]
  - Abdominal pain [None]
  - Cholecystitis chronic [None]
